FAERS Safety Report 25143120 (Version 1)
Quarter: 2025Q2

REPORT INFORMATION
  Report Type: Spontaneous
  Country: US (occurrence: US)
  Receive Date: 20250401
  Receipt Date: 20250401
  Transmission Date: 20250716
  Serious: No
  Sender: ROCHE
  Company Number: US-ROCHE-10000239125

PATIENT
  Age: 66 Year
  Sex: Female
  Weight: 86.18 kg

DRUGS (1)
  1. ACTEMRA [Suspect]
     Active Substance: TOCILIZUMAB
     Indication: Rheumatoid arthritis
     Route: 058
     Dates: start: 20250313

REACTIONS (6)
  - Underdose [Unknown]
  - Wrong technique in product usage process [Unknown]
  - Contusion [Not Recovered/Not Resolved]
  - Device malfunction [Unknown]
  - Device physical property issue [Unknown]
  - Device issue [Unknown]

NARRATIVE: CASE EVENT DATE: 20250313
